FAERS Safety Report 5163306-7 (Version None)
Quarter: 2006Q4

REPORT INFORMATION
  Report Type: 
  Country: None (occurrence: None)
  Receive Date: 20061121
  Receipt Date: 20061108
  Transmission Date: 20070319
  Serious: Yes (Other)
  Sender: FDA-Public Use
  Company Number: 2006139777

PATIENT
  Age: 64 Year
  Sex: Male
  Weight: 86.1834 kg

DRUGS (2)
  1. ROGAINE 5 [Suspect]
     Indication: ALOPECIA
     Dosage: 1 ML 2 TIMES A DAY, TOPICAL
     Route: 061
     Dates: start: 20061101
  2. ROGAINE 5 [Suspect]

REACTIONS (2)
  - DIZZINESS [None]
  - LOSS OF CONSCIOUSNESS [None]
